FAERS Safety Report 22029816 (Version 2)
Quarter: 2023Q1

REPORT INFORMATION
  Report Type: Spontaneous
  Country: US (occurrence: US)
  Receive Date: 20230223
  Receipt Date: 20230227
  Transmission Date: 20230418
  Serious: No
  Sender: FDA-Public Use
  Company Number: US-AMGEN-USASP2023022814

PATIENT
  Age: 80 Year
  Sex: Female

DRUGS (3)
  1. REPATHA [Suspect]
     Active Substance: EVOLOCUMAB
     Indication: Blood cholesterol increased
     Dosage: 140 MILLIGRAM, Q2WK
     Route: 058
  2. REPATHA [Suspect]
     Active Substance: EVOLOCUMAB
     Dosage: 140 MILLIGRAM, Q2WK
     Route: 058
  3. XARELTO [Concomitant]
     Active Substance: RIVAROXABAN

REACTIONS (8)
  - Device difficult to use [Unknown]
  - Rash [Unknown]
  - Skin exfoliation [Unknown]
  - Adverse drug reaction [Unknown]
  - Injection site bruising [Recovered/Resolved]
  - Muscle atrophy [Unknown]
  - Skin atrophy [Unknown]
  - Vulvovaginal rash [Unknown]

NARRATIVE: CASE EVENT DATE: 20230202
